FAERS Safety Report 9170902 (Version 1)
Quarter: 2013Q1

REPORT INFORMATION
  Report Type: Spontaneous
  Country: US (occurrence: US)
  Receive Date: 20130319
  Receipt Date: 20130319
  Transmission Date: 20140127
  Serious: No
  Sender: FDA-Public Use
  Company Number: US-PFIZER INC-2013088991

PATIENT
  Age: 60 Year
  Sex: Male
  Weight: 100 kg

DRUGS (2)
  1. ADVIL [Suspect]
     Indication: MUSCULOSKELETAL STIFFNESS
     Dosage: UNK
     Dates: start: 20130313
  2. ADVIL [Suspect]
     Indication: PAIN PROPHYLAXIS

REACTIONS (3)
  - Overdose [Unknown]
  - Dyspnoea [Unknown]
  - Asthenia [Unknown]
